FAERS Safety Report 7657280-9 (Version None)
Quarter: 2011Q3

REPORT INFORMATION
  Report Type: 
  Country: None (occurrence: None)
  Receive Date: 20110804
  Receipt Date: 20110725
  Transmission Date: 20111222
  Serious: Yes (Hospitalization, Other)
  Sender: FDA-Public Use
  Company Number: PHHY2010US81682

PATIENT
  Age: 30 Year
  Sex: Female

DRUGS (6)
  1. DILTIAZEM [Suspect]
  2. CALCIUM ACETATE [Concomitant]
  3. AMIODARONE HCL [Suspect]
  4. SOYA OIL [Concomitant]
     Route: 042
  5. METOPROLOL TARTRATE [Suspect]
  6. SODIUM CHLORIDE [Concomitant]

REACTIONS (8)
  - ABDOMINAL PAIN [None]
  - HYPOTENSION [None]
  - CARDIAC FUNCTION TEST ABNORMAL [None]
  - ANURIA [None]
  - CARDIOGENIC SHOCK [None]
  - CONFUSIONAL STATE [None]
  - OVERDOSE [None]
  - RENAL FAILURE [None]
